FAERS Safety Report 21729882 (Version 1)
Quarter: 2022Q4

REPORT INFORMATION
  Report Type: Spontaneous
  Country: US (occurrence: None)
  Receive Date: 20221214
  Receipt Date: 20221214
  Transmission Date: 20230113
  Serious: Yes (Hospitalization)
  Sender: FDA-Public Use
  Company Number: None

PATIENT
  Age: 2 Year
  Sex: Male
  Weight: 13 kg

DRUGS (4)
  1. CAMPTOSAR [Suspect]
     Active Substance: IRINOTECAN HYDROCHLORIDE
     Dates: end: 20221120
  2. LEUKINE [Suspect]
     Active Substance: SARGRAMOSTIM
     Dates: end: 20221127
  3. TEMOZOLOMIDE [Suspect]
     Active Substance: TEMOZOLOMIDE
     Dates: end: 20221120
  4. DINUTUXIMAB [Suspect]
     Active Substance: DINUTUXIMAB
     Dosage: OTHER QUANTITY : 10.325 MG;?
     Dates: end: 20221120

REACTIONS (2)
  - Pyrexia [None]
  - Bacterial infection [None]

NARRATIVE: CASE EVENT DATE: 20221203
